APPROVED DRUG PRODUCT: VESANOID
Active Ingredient: TRETINOIN
Strength: 10MG **Federal Register determination that product was not discontinued or withdrawn for safety or effectiveness reasons**
Dosage Form/Route: CAPSULE;ORAL
Application: N020438 | Product #001
Applicant: CHEPLAPHARM ARZNEIMITTEL GMBH
Approved: Nov 22, 1995 | RLD: Yes | RS: No | Type: DISCN